FAERS Safety Report 8186386-3 (Version None)
Quarter: 2012Q1

REPORT INFORMATION
  Report Type: 
  Country: None (occurrence: None)
  Receive Date: 20120306
  Receipt Date: 20120227
  Transmission Date: 20120608
  Serious: Yes (Hospitalization)
  Sender: FDA-Public Use
  Company Number: US-BAYER-2012-019568

PATIENT
  Age: 25 Year
  Sex: Female

DRUGS (3)
  1. MINOCIN [Concomitant]
     Indication: ACNE
  2. DROSPIRENONE AND ETHINYL ESTRADIOL [Suspect]
  3. YAZ [Suspect]
     Indication: ACNE
     Dosage: UNK

REACTIONS (1)
  - PULMONARY EMBOLISM [None]
